FAERS Safety Report 4789928-0 (Version None)
Quarter: 2005Q4

REPORT INFORMATION
  Report Type: 
  Country: None (occurrence: None)
  Receive Date: 20051006
  Receipt Date: 20050908
  Transmission Date: 20060501
  Serious: Yes (Other)
  Sender: FDA-Public Use
  Company Number: US-MERCK-0509USA01199

PATIENT
  Age: 72 Year
  Sex: Male
  Weight: 93 kg

DRUGS (12)
  1. VIOXX [Suspect]
     Indication: ARTHRITIS
     Route: 048
     Dates: start: 20020809, end: 20040901
  2. NEXIUM [Concomitant]
     Route: 065
  3. PLAVIX [Concomitant]
     Route: 065
  4. ATENOLOL MSD [Concomitant]
     Route: 065
  5. LISINOPRIL-BC [Concomitant]
     Route: 065
  6. CLONIDINE [Concomitant]
     Route: 065
  7. ACIPHEX [Concomitant]
     Route: 065
  8. NORVASC [Concomitant]
     Route: 065
  9. AGGRENOX [Concomitant]
     Route: 065
  10. HYZAAR [Concomitant]
     Route: 065
  11. LIPITOR [Concomitant]
     Route: 065
  12. DOCUSATE SODIUM [Concomitant]
     Route: 065

REACTIONS (3)
  - BLINDNESS UNILATERAL [None]
  - CEREBROVASCULAR ACCIDENT [None]
  - NECK PAIN [None]
